FAERS Safety Report 12754308 (Version 1)
Quarter: 2016Q3

REPORT INFORMATION
  Report Type: Spontaneous
  Country: US (occurrence: US)
  Receive Date: 20160915
  Receipt Date: 20160915
  Transmission Date: 20161109
  Serious: No
  Sender: FDA-Public Use
  Company Number: US-ASTELLAS-2015US046991

PATIENT
  Age: 63 Year
  Sex: Male

DRUGS (2)
  1. XTANDI [Suspect]
     Active Substance: ENZALUTAMIDE
     Indication: PROSTATE CANCER
     Dosage: 160 MG, ONCE DAILY (04 CAPSULES OF 40 MG)
     Route: 048
     Dates: start: 20151111
  2. XTANDI [Suspect]
     Active Substance: ENZALUTAMIDE
     Dosage: 160 MG, ONCE DAILY (04 CAPSULES OF 40 MG)
     Route: 048

REACTIONS (2)
  - Treatment noncompliance [Unknown]
  - Asthenia [Unknown]

NARRATIVE: CASE EVENT DATE: 20151214
